FAERS Safety Report 16179378 (Version 3)
Quarter: 2019Q2

REPORT INFORMATION
  Report Type: Spontaneous
  Country: US (occurrence: US)
  Receive Date: 20190410
  Receipt Date: 20190625
  Transmission Date: 20190711
  Serious: Yes (Other)
  Sender: FDA-Public Use
  Company Number: US-PFIZER INC-2019151977

PATIENT
  Age: 67 Year
  Sex: Female

DRUGS (6)
  1. XANAX [Suspect]
     Active Substance: ALPRAZOLAM
     Indication: MENTAL DISORDER
     Dosage: 1 MG, UNK
  2. XANAX [Suspect]
     Active Substance: ALPRAZOLAM
     Indication: MENTAL DISORDER
     Dosage: ^20 MG^
     Dates: start: 2000
  3. XANAX [Suspect]
     Active Substance: ALPRAZOLAM
     Indication: ANXIETY
  4. LITHIUM. [Suspect]
     Active Substance: LITHIUM
     Dosage: UNK UNK, 3X/DAY
  5. LITHIUM. [Suspect]
     Active Substance: LITHIUM
     Dosage: 150 MG, UNK
  6. LITHIUM. [Suspect]
     Active Substance: LITHIUM
     Indication: MENTAL DISORDER
     Dosage: 300 MG, UNK

REACTIONS (4)
  - Drug intolerance [Unknown]
  - Renal disorder [Not Recovered/Not Resolved]
  - Euphoric mood [Unknown]
  - Thyroid disorder [Unknown]
